FAERS Safety Report 9295289 (Version 1)
Quarter: 2013Q1

REPORT INFORMATION
  Report Type: Spontaneous
  Country: US (occurrence: None)
  Receive Date: 20121227
  Receipt Date: 20121227
  Transmission Date: 20140127
  Serious: No
  Sender: FDA-Public Use
  Company Number: PHEH2012US021740

PATIENT
  Age: 65 Year
  Sex: Female
  Weight: 112.9 kg

DRUGS (1)
  1. AFINITOR [Suspect]
     Route: 048
     Dates: start: 20121009

REACTIONS (2)
  - Glossodynia [None]
  - Epistaxis [None]
